FAERS Safety Report 8800856 (Version 2)
Quarter: 2012Q4

REPORT INFORMATION
  Report Type: 
  Country: IT (occurrence: IT)
  Receive Date: 20120921
  Receipt Date: 20121005
  Transmission Date: 20130627
  Serious: Yes (Hospitalization, Other)
  Sender: FDA-Public Use
  Company Number: IT-PFIZER INC-2012232311

PATIENT
  Age: 74 Year
  Sex: Female

DRUGS (6)
  1. CORDARONE [Suspect]
     Indication: ATRIAL FIBRILLATION
     Dosage: 200 mg, 1x/day
     Route: 048
     Dates: start: 20100101
  2. REPAGLINIDE [Concomitant]
     Dosage: UNK
  3. ANTRA [Concomitant]
     Dosage: UNK
  4. LASIX [Concomitant]
     Dosage: UNK
  5. CLEXANE [Concomitant]
     Dosage: UNK
  6. ALDACTONE [Concomitant]
     Dosage: UNK

REACTIONS (5)
  - Sinus bradycardia [Recovering/Resolving]
  - Hypothyroidism [Recovering/Resolving]
  - Cardiac failure congestive [Unknown]
  - Renal failure acute [Unknown]
  - Cholecystitis acute [Unknown]
